FAERS Safety Report 10205695 (Version 26)
Quarter: 2019Q3

REPORT INFORMATION
  Report Type: Spontaneous
  Country: CA (occurrence: CA)
  Receive Date: 20140530
  Receipt Date: 20190910
  Transmission Date: 20191004
  Serious: Yes (Hospitalization, Other)
  Sender: FDA-Public Use
  Company Number: CA-ROCHE-1409404

PATIENT
  Age: 63 Year
  Sex: Female

DRUGS (18)
  1. XOLAIR [Suspect]
     Active Substance: OMALIZUMAB
     Dosage: UNK
     Route: 058
     Dates: start: 20141014
  2. XOLAIR [Suspect]
     Active Substance: OMALIZUMAB
     Dosage: UNK
     Route: 058
     Dates: start: 20170515
  3. XOLAIR [Suspect]
     Active Substance: OMALIZUMAB
     Route: 058
     Dates: start: 20180828
  4. COMBIVENT RESPIMAT [Suspect]
     Active Substance: ALBUTEROL SULFATE\IPRATROPIUM BROMIDE
     Dosage: 2 DF (PUFFS)
     Route: 065
  5. XOLAIR [Suspect]
     Active Substance: OMALIZUMAB
     Dosage: UNK
     Route: 058
     Dates: start: 20140916
  6. XOLAIR [Suspect]
     Active Substance: OMALIZUMAB
     Dosage: UNK
     Route: 058
     Dates: start: 20161018
  7. XOLAIR [Suspect]
     Active Substance: OMALIZUMAB
     Route: 058
     Dates: start: 20180424
  8. XOLAIR [Suspect]
     Active Substance: OMALIZUMAB
     Route: 058
     Dates: start: 20190207
  9. XOLAIR [Suspect]
     Active Substance: OMALIZUMAB
     Indication: ASTHMA
     Route: 058
     Dates: start: 20131203
  10. XOLAIR [Suspect]
     Active Substance: OMALIZUMAB
     Dosage: UNK
     Route: 058
     Dates: start: 20160524
  11. XOLAIR [Suspect]
     Active Substance: OMALIZUMAB
     Dosage: UNK
     Route: 058
     Dates: start: 20161004
  12. COMBIVENT RESPIMAT [Suspect]
     Active Substance: ALBUTEROL SULFATE\IPRATROPIUM BROMIDE
     Indication: SEASONAL ALLERGY
     Dosage: 2 DF (20MCG/100MCG, 2 PUFFS), QD
     Route: 065
  13. XOLAIR [Suspect]
     Active Substance: OMALIZUMAB
     Dosage: UNK
     Route: 058
     Dates: start: 20141209
  14. XOLAIR [Suspect]
     Active Substance: OMALIZUMAB
     Route: 058
     Dates: start: 20170627
  15. XOLAIR [Suspect]
     Active Substance: OMALIZUMAB
     Route: 058
     Dates: start: 20181017
  16. XOLAIR [Suspect]
     Active Substance: OMALIZUMAB
     Route: 058
     Dates: start: 20190813
  17. XOLAIR [Suspect]
     Active Substance: OMALIZUMAB
     Dosage: UNK
     Route: 058
     Dates: start: 20140123
  18. XOLAIR [Suspect]
     Active Substance: OMALIZUMAB
     Dosage: UNK
     Route: 058
     Dates: start: 20170502

REACTIONS (34)
  - Chest pain [Recovering/Resolving]
  - Cardiomegaly [Recovering/Resolving]
  - Influenza [Recovering/Resolving]
  - Eye pruritus [Unknown]
  - Back pain [Unknown]
  - Dyspnoea exertional [Unknown]
  - Malaise [Unknown]
  - Hypersensitivity [Unknown]
  - Decreased appetite [Unknown]
  - Blood pressure systolic increased [Unknown]
  - Muscle spasms [Recovering/Resolving]
  - Asthma [Unknown]
  - Cough [Unknown]
  - Sensitivity to weather change [Unknown]
  - Chills [Unknown]
  - Nausea [Unknown]
  - Pulmonary pain [Unknown]
  - Tremor [Unknown]
  - Alopecia [Unknown]
  - Rhinorrhoea [Unknown]
  - Headache [Unknown]
  - Body temperature decreased [Unknown]
  - Depressed mood [Unknown]
  - Forced expiratory volume decreased [Unknown]
  - Incorrect dose administered [Unknown]
  - Bone density decreased [Unknown]
  - Infection [Unknown]
  - Dyspnoea [Unknown]
  - Pneumonia [Unknown]
  - Seasonal allergy [Unknown]
  - Dizziness [Unknown]
  - Lung disorder [Unknown]
  - Secretion discharge [Unknown]
  - Middle insomnia [Unknown]

NARRATIVE: CASE EVENT DATE: 20131217
